FAERS Safety Report 8001831-1 (Version None)
Quarter: 2011Q4

REPORT INFORMATION
  Report Type: 
  Country: None (occurrence: None)
  Receive Date: 20111123
  Receipt Date: 20110812
  Transmission Date: 20120403
  Serious: No
  Sender: FDA-Public Use
  Company Number: 336310

PATIENT
  Age: 61 Year
  Sex: Female

DRUGS (5)
  1. GLUCOTROL [Concomitant]
  2. THORAZINE /00011901/ (CHLORPROMAZINE) [Concomitant]
  3. VICTOZA [Suspect]
     Indication: TYPE 2 DIABETES MELLITUS
     Dosage: SUBCUTANEOUS
     Route: 058
     Dates: start: 20110811
  4. VICTOZA [Suspect]
     Indication: WEIGHT DECREASED
     Dosage: SUBCUTANEOUS
     Route: 058
     Dates: start: 20110811
  5. METFORMIN HCL [Concomitant]

REACTIONS (4)
  - NERVOUSNESS [None]
  - BLOOD GLUCOSE DECREASED [None]
  - INJECTION SITE REACTION [None]
  - DECREASED APPETITE [None]
